FAERS Safety Report 4696186-4 (Version None)
Quarter: 2005Q2

REPORT INFORMATION
  Report Type: 
  Country: None (occurrence: None)
  Receive Date: 20050608
  Receipt Date: 20040723
  Transmission Date: 20051028
  Serious: Yes (Other)
  Sender: FDA-Public Use
  Company Number: 376512

PATIENT
  Sex: 0

DRUGS (1)
  1. ISOTRETINOIN [Suspect]
     Indication: ACNE
     Dosage: 10 MG 1 PER 2 DAY ORAL
     Route: 048
     Dates: start: 20040223, end: 20040623

REACTIONS (2)
  - NO ADVERSE EFFECT [None]
  - PREGNANCY [None]
